FAERS Safety Report 4915227-X (Version None)
Quarter: 2006Q1

REPORT INFORMATION
  Report Type: 
  Country: None (occurrence: None)
  Receive Date: 20060216
  Receipt Date: 20060216
  Transmission Date: 20060701
  Serious: Yes (Other)
  Sender: FDA-Public Use
  Company Number: None

PATIENT
  Sex: Female

DRUGS (2)
  1. ADDERALL 10 [Suspect]
     Indication: BACK PAIN
     Dosage: 5 MG   ORAL    (6 TABLETS TOTAL)
     Route: 048
  2. AMBIEN [Concomitant]

REACTIONS (6)
  - DRUG DISPENSING ERROR [None]
  - ELECTROCARDIOGRAM T WAVE INVERSION [None]
  - MALAISE [None]
  - MEDICATION ERROR [None]
  - PALPITATIONS [None]
  - WRONG DRUG ADMINISTERED [None]
